FAERS Safety Report 8607599 (Version 4)
Quarter: 2013Q4

REPORT INFORMATION
  Report Type: Spontaneous
  Country: US (occurrence: US)
  Receive Date: 20120611
  Receipt Date: 20131118
  Transmission Date: 20140711
  Serious: No
  Sender: FDA-Public Use
  Company Number: US-PFIZER INC-2012133807

PATIENT
  Age: 46 Year
  Sex: Female
  Weight: 74.8 kg

DRUGS (10)
  1. NEURONTIN [Suspect]
     Indication: DIABETIC NEUROPATHY
     Dosage: 300 MG, 3X/DAY
  2. NEURONTIN [Suspect]
     Dosage: 300 MG, 4X/DAY
  3. DAYPRO [Suspect]
     Dosage: UNK
  4. PROTONIX [Suspect]
     Indication: GASTROOESOPHAGEAL REFLUX DISEASE
     Dosage: UNK
  5. AMARYL [Concomitant]
     Indication: DIABETES MELLITUS
     Dosage: 2 MG, 2X/DAY
  6. ENALAPRIL [Concomitant]
     Indication: HYPERTENSION
     Dosage: 10 MG, 1X/DAY
  7. METFORMIN [Concomitant]
     Indication: DIABETES MELLITUS
     Dosage: 1000 MG, 2X/DAY
  8. ASPIRIN [Concomitant]
     Indication: CARDIAC DISORDER
     Dosage: 81 MG, 1X/DAY
  9. B COMPLEX [Concomitant]
     Dosage: UNK
  10. MAGNESIUM [Concomitant]
     Dosage: 500 MG, 1X/DAY

REACTIONS (2)
  - Drug ineffective [Unknown]
  - Blood glucose abnormal [Unknown]
